FAERS Safety Report 14248961 (Version 8)
Quarter: 2019Q3

REPORT INFORMATION
  Report Type: Spontaneous
  Country: GR (occurrence: GR)
  Receive Date: 20171204
  Receipt Date: 20190805
  Transmission Date: 20191004
  Serious: Yes (Hospitalization, Other)
  Sender: FDA-Public Use
  Company Number: GR-MYLANLABS-2017M1075154

PATIENT
  Age: 49 Year
  Sex: Male
  Weight: 107 kg

DRUGS (42)
  1. SEVOFLURANE. [Suspect]
     Active Substance: SEVOFLURANE
     Dosage: UNK, TOTAL
     Route: 055
  2. MIDAZOLAM [Suspect]
     Active Substance: MIDAZOLAM HYDROCHLORIDE
     Indication: MAINTENANCE OF ANAESTHESIA
  3. DIAZEPAM. [Concomitant]
     Active Substance: DIAZEPAM
     Indication: PREMEDICATION
     Dosage: ADDITIONAL INFO: 1 H BEFORE SURGERY
     Route: 048
  4. SALBUTAMOL SULFATE [Concomitant]
     Active Substance: ALBUTEROL SULFATE
     Indication: BRONCHOSPASM
     Dosage: UNK, TOTAL
  5. CALCIUM CHLORIDE. [Concomitant]
     Active Substance: CALCIUM CHLORIDE
     Dosage: UNK
  6. KETAMINE [Suspect]
     Active Substance: KETAMINE
     Indication: BRONCHOSPASM
     Dosage: 20 MILLIGRAM, Q2H
     Route: 042
  7. KETAMINE [Suspect]
     Active Substance: KETAMINE
     Dosage: 40 MILLIGRAM
     Route: 040
  8. SALBUTAMOL SULFATE [Concomitant]
     Active Substance: ALBUTEROL SULFATE
     Dosage: ADDITIONAL INFO: 1 H BEFORE SURGERY
     Route: 055
  9. ADRENALINE                         /00003901/ [Concomitant]
     Active Substance: EPINEPHRINE
     Indication: WHEEZING
     Dosage: 3 MG, UNK
     Route: 042
  10. MIDAZOLAM [Suspect]
     Active Substance: MIDAZOLAM HYDROCHLORIDE
     Indication: GENERAL ANAESTHESIA
  11. IPRATROPIUM BROMIDE. [Concomitant]
     Active Substance: IPRATROPIUM BROMIDE
     Indication: PREMEDICATION
     Dosage: ADDITIONAL INFO: 1 H BEFORE SURGERY
  12. DIAZEPAM. [Concomitant]
     Active Substance: DIAZEPAM
     Indication: ANAESTHETIC PREMEDICATION
  13. SALBUTAMOL SULFATE [Concomitant]
     Active Substance: ALBUTEROL SULFATE
     Dosage: 10 DOSAGE FORM
     Route: 065
  14. SODIUM LACTATE COMPOUND [Concomitant]
     Active Substance: CALCIUM CHLORIDE\POTASSIUM CHLORIDE\SODIUM CHLORIDE\SODIUM LACTATE
     Indication: PRODUCT USED FOR UNKNOWN INDICATION
  15. RINGER^S SOLUTION                  /03112001/ [Concomitant]
     Active Substance: CALCIUM CHLORIDE\POTASSIUM CHLORIDE
     Indication: PRODUCT USED FOR UNKNOWN INDICATION
     Dosage: UNK
  16. FENTANYL. [Suspect]
     Active Substance: FENTANYL
     Indication: GENERAL ANAESTHESIA
  17. KETAMINE [Suspect]
     Active Substance: KETAMINE
     Dosage: 2 MG/KG, QH
     Route: 042
  18. LIDOCAINE. [Suspect]
     Active Substance: LIDOCAINE
     Indication: INDUCTION OF ANAESTHESIA
  19. SALBUTAMOL SULFATE [Concomitant]
     Active Substance: ALBUTEROL SULFATE
     Indication: PREMEDICATION
     Dosage: UNK UNK,UNK, RESPIRATORY (INHALATION)
     Route: 055
  20. RANITIDINE. [Suspect]
     Active Substance: RANITIDINE
     Indication: PRODUCT USED FOR UNKNOWN INDICATION
     Dosage: 50 MG, UNK
     Route: 042
  21. ROCURONIUM [Suspect]
     Active Substance: ROCURONIUM BROMIDE
     Indication: GENERAL ANAESTHESIA
     Dosage: 70 MG, TOTAL
     Route: 065
  22. IPRATROPIUM BROMIDE. [Concomitant]
     Active Substance: IPRATROPIUM BROMIDE
     Indication: ANAESTHETIC PREMEDICATION
     Dosage: UNK
     Route: 065
  23. ADRENALINE                         /00003901/ [Concomitant]
     Active Substance: EPINEPHRINE
     Dosage: 3 MG, UNK
     Route: 055
  24. HYDROCORTISONE. [Concomitant]
     Active Substance: HYDROCORTISONE
     Indication: PRODUCT USED FOR UNKNOWN INDICATION
     Dosage: 200 MG, UNK
     Route: 065
  25. ROCURONIUM [Suspect]
     Active Substance: ROCURONIUM BROMIDE
     Indication: INDUCTION OF ANAESTHESIA
  26. LIDOCAINE. [Suspect]
     Active Substance: LIDOCAINE
     Indication: GENERAL ANAESTHESIA
     Dosage: 100 MG, TOTAL
     Route: 065
  27. MAGNESIUM [Suspect]
     Active Substance: MAGNESIUM
     Indication: BRONCHOSPASM
     Dosage: 2 G, UNK,TREATMENT
     Route: 042
  28. MAGNESIUM [Suspect]
     Active Substance: MAGNESIUM
     Dosage: 0.25 MILLIGRAM, TOTAL
     Route: 065
  29. SEVOFLURANE. [Suspect]
     Active Substance: SEVOFLURANE
     Indication: MAINTENANCE OF ANAESTHESIA
     Dosage: UNK
     Route: 065
  30. MIDAZOLAM [Suspect]
     Active Substance: MIDAZOLAM HYDROCHLORIDE
     Indication: ANAESTHESIA
     Dosage: 2 MILLIGRAM, TOTAL
     Route: 042
  31. SALBUTAMOL SULFATE [Concomitant]
     Active Substance: ALBUTEROL SULFATE
     Dosage: DOSE 10 PUFFS OF SALBUTAMOL SPACER - 100MCG/DOSE DOSE:10 PUFF(S)
     Route: 065
  32. SALBUTAMOL SULFATE [Concomitant]
     Active Substance: ALBUTEROL SULFATE
     Dosage: 30 DOSAGE FORM, TOTAL
     Route: 065
  33. FENTANYL. [Suspect]
     Active Substance: FENTANYL
     Indication: INDUCTION OF ANAESTHESIA
     Dosage: 0.25 MILLIGRAM, TOTAL
     Route: 042
  34. PROPOFOL. [Suspect]
     Active Substance: PROPOFOL
     Indication: INDUCTION OF ANAESTHESIA
     Dosage: 200 MG, TOTAL
     Route: 042
  35. PROPOFOL. [Suspect]
     Active Substance: PROPOFOL
     Indication: GENERAL ANAESTHESIA
     Dosage: 200 MG, TOTAL
     Route: 065
  36. MIDAZOLAM [Suspect]
     Active Substance: MIDAZOLAM HYDROCHLORIDE
     Indication: GENERAL ANAESTHESIA
  37. IPRATROPIUM BROMIDE. [Concomitant]
     Active Substance: IPRATROPIUM BROMIDE
     Indication: BRONCHOSPASM
  38. BUDESONIDE. [Concomitant]
     Active Substance: BUDESONIDE
     Indication: BRONCHOSPASM
     Dosage: 2UNK, QD
     Route: 065
  39. BUDESONIDE. [Concomitant]
     Active Substance: BUDESONIDE
     Indication: PREMEDICATION
     Dosage: UNK UNK, BID
     Route: 065
  40. DIMETINDENE MALEATE [Concomitant]
     Active Substance: DIMETHINDENE MALEATE
     Indication: PRODUCT USED FOR UNKNOWN INDICATION
     Dosage: 4MG/100ML
     Route: 042
  41. SALBUTAMOL SULFATE [Concomitant]
     Active Substance: ALBUTEROL SULFATE
     Indication: ANAESTHETIC PREMEDICATION
     Dosage: UNK
     Route: 065
  42. BUDESONIDE. [Concomitant]
     Active Substance: BUDESONIDE
     Indication: ANAESTHETIC PREMEDICATION
     Dosage: ADDITIONAL INFO: 1 H BEFORE SURGERYUNK

REACTIONS (7)
  - Erythema [Unknown]
  - Bronchospasm [Recovered/Resolved]
  - Hypotension [Recovered/Resolved]
  - Wheezing [Recovered/Resolved]
  - Blood pressure decreased [Recovered/Resolved]
  - Hypersensitivity [Recovered/Resolved]
  - Flushing [Recovered/Resolved]
